FAERS Safety Report 11374228 (Version 1)
Quarter: 2015Q3

REPORT INFORMATION
  Report Type: Spontaneous
  Country: US (occurrence: US)
  Receive Date: 20150812
  Receipt Date: 20150812
  Transmission Date: 20151125
  Serious: No
  Sender: FDA-Public Use
  Company Number: US-ASTRAZENECA-2015SE75650

PATIENT

DRUGS (3)
  1. NEXIUM [Suspect]
     Active Substance: ESOMEPRAZOLE MAGNESIUM
     Route: 048
  2. DOTERRA ESSENTIAL OIL [Concomitant]
     Indication: DYSPEPSIA
     Dates: end: 201412
  3. DOTERRA ESSENTIAL OIL [Concomitant]
     Indication: DYSPEPSIA

REACTIONS (2)
  - Dyspepsia [Recovered/Resolved]
  - General physical health deterioration [Unknown]
